FAERS Safety Report 12667312 (Version 1)
Quarter: 2016Q3

REPORT INFORMATION
  Report Type: Spontaneous
  Country: US (occurrence: None)
  Receive Date: 20160818
  Receipt Date: 20160818
  Transmission Date: 20161109
  Serious: Yes (Other)
  Sender: FDA-Public Use
  Company Number: None

PATIENT
  Age: 14 Year
  Sex: Male
  Weight: 64.1 kg

DRUGS (3)
  1. TENEX [Concomitant]
     Active Substance: GUANFACINE HYDROCHLORIDE
  2. ZOLOFT [Concomitant]
     Active Substance: SERTRALINE HYDROCHLORIDE
  3. NORDITROPIN [Suspect]
     Active Substance: SOMATROPIN
     Indication: GROWTH HORMONE DEFICIENCY
     Dosage: 1.3MG 7 SC
     Route: 058
     Dates: start: 2010, end: 201507

REACTIONS (2)
  - Agitation [None]
  - Insomnia [None]

NARRATIVE: CASE EVENT DATE: 20150701
